FAERS Safety Report 17251708 (Version 2)
Quarter: 2020Q1

REPORT INFORMATION
  Report Type: Spontaneous
  Country: CZ (occurrence: CZ)
  Receive Date: 20200109
  Receipt Date: 20200221
  Transmission Date: 20200409
  Serious: Yes (Hospitalization, Other)
  Sender: FDA-Public Use
  Company Number: NVSC2020CZ003317

PATIENT
  Age: 38 Year
  Sex: Female

DRUGS (2)
  1. CLINDAMYCIN. [Suspect]
     Active Substance: CLINDAMYCIN
     Indication: INFECTION
     Dosage: UNK
     Route: 065
  2. GENTAMICIN. [Suspect]
     Active Substance: GENTAMICIN
     Indication: INFECTION
     Route: 065

REACTIONS (9)
  - Neutrophilia [Unknown]
  - Hypersensitivity vasculitis [Unknown]
  - Immunoglobulins increased [Unknown]
  - Dysphagia [Recovering/Resolving]
  - C-reactive protein increased [Unknown]
  - Leukocytosis [Unknown]
  - Thrombocytosis [Unknown]
  - Disease progression [Recovering/Resolving]
  - Rash [Recovering/Resolving]
